FAERS Safety Report 13738346 (Version 5)
Quarter: 2021Q4

REPORT INFORMATION
  Report Type: Report from Study
  Country: US (occurrence: US)
  Receive Date: 20170710
  Receipt Date: 20211011
  Transmission Date: 20220303
  Serious: Yes (Hospitalization)
  Sender: FDA-Public Use
  Company Number: US-ARBOR PHARMACEUTICALS, LLC-US-2017ARB000642

PATIENT
  Age: 52 Year
  Sex: Male
  Weight: 99.77 kg

DRUGS (1)
  1. CARMUSTINE [Suspect]
     Active Substance: CARMUSTINE
     Indication: Glioblastoma multiforme
     Dosage: 16 WAFERS, 7.7 MG WAFERS (123.2 MG TOTAL)
     Dates: start: 20170518, end: 20170529

REACTIONS (4)
  - Wound infection [Recovered/Resolved]
  - Meningitis candida [Recovered/Resolved]
  - Hydrocephalus [Recovered/Resolved with Sequelae]
  - Meningitis bacterial [Recovered/Resolved]

NARRATIVE: CASE EVENT DATE: 20170622
